FAERS Safety Report 11177964 (Version 1)
Quarter: 2015Q2

REPORT INFORMATION
  Report Type: Spontaneous
  Country: US (occurrence: None)
  Receive Date: 20150609
  Receipt Date: 20150609
  Transmission Date: 20150821
  Serious: Yes (Other)
  Sender: FDA-Public Use
  Company Number: None

PATIENT
  Age: 5 Year
  Sex: Female
  Weight: 14.97 kg

DRUGS (1)
  1. TOPIRAMATE. [Suspect]
     Active Substance: TOPIRAMATE
     Indication: COMPLEX PARTIAL SEIZURES
     Route: 048
     Dates: start: 20150515, end: 20150608

REACTIONS (7)
  - Hallucination, visual [None]
  - Fatigue [None]
  - Middle insomnia [None]
  - Fear [None]
  - Decreased appetite [None]
  - Condition aggravated [None]
  - Nightmare [None]

NARRATIVE: CASE EVENT DATE: 20150515
